FAERS Safety Report 23946617 (Version 1)
Quarter: 2024Q2

REPORT INFORMATION
  Report Type: Spontaneous
  Country: CA (occurrence: CA)
  Receive Date: 20240606
  Receipt Date: 20240606
  Transmission Date: 20240716
  Serious: Yes (Life-Threatening, Other)
  Sender: FDA-Public Use
  Company Number: CA-PFIZER INC-202400187443

PATIENT
  Age: 68 Year
  Sex: Male
  Weight: 173 kg

DRUGS (21)
  1. HYDROMORPHONE HYDROCHLORIDE [Suspect]
     Active Substance: HYDROMORPHONE HYDROCHLORIDE
     Indication: Pain
     Dosage: 1 MG, 1 EVERY 3 HOURS
     Route: 058
  2. BREZTRI [Concomitant]
     Active Substance: BUDESONIDE\FORMOTEROL\GLYCOPYRROLATE
  3. DILTIAZEM [Concomitant]
     Active Substance: DILTIAZEM
  4. DOXAZOSIN [Concomitant]
     Active Substance: DOXAZOSIN MESYLATE
  5. EMPAGLIFLOZIN [Concomitant]
     Active Substance: EMPAGLIFLOZIN
  6. EZETIMIBE [Concomitant]
     Active Substance: EZETIMIBE
  7. FLUTICASONE [Concomitant]
     Active Substance: FLUTICASONE
  8. IRBESARTAN [Concomitant]
     Active Substance: IRBESARTAN
     Route: 065
  9. IRON [Concomitant]
     Active Substance: IRON
  10. POLYETHYLENE GLYCOLS [Concomitant]
     Active Substance: POLYETHYLENE GLYCOLS
     Route: 065
  11. METFORMIN [Concomitant]
     Active Substance: METFORMIN HYDROCHLORIDE
  12. MOXIFLOXACIN [Concomitant]
     Active Substance: MOXIFLOXACIN
  13. PANTOPRAZOLE [Concomitant]
     Active Substance: PANTOPRAZOLE
  14. GRAMICIDIN\POLYMYXIN B [Concomitant]
     Active Substance: GRAMICIDIN\POLYMYXIN B
  15. PRAVASTATIN SODIUM [Concomitant]
     Active Substance: PRAVASTATIN SODIUM
  16. PREDNISONE [Concomitant]
     Active Substance: PREDNISONE
  17. PREGABALIN [Concomitant]
     Active Substance: PREGABALIN
  18. ALBUTEROL [Concomitant]
     Active Substance: ALBUTEROL
  19. TRAZODONE [Concomitant]
     Active Substance: TRAZODONE HYDROCHLORIDE
  20. VITAMIN B12 [Concomitant]
     Active Substance: CYANOCOBALAMIN
  21. CHOLECALCIFEROL [Concomitant]
     Active Substance: CHOLECALCIFEROL

REACTIONS (3)
  - Altered state of consciousness [Recovered/Resolved]
  - Intensive care [Recovered/Resolved]
  - Respiratory depression [Recovered/Resolved]
